FAERS Safety Report 9668970 (Version 2)
Quarter: 2014Q1

REPORT INFORMATION
  Report Type: Spontaneous
  Country: US (occurrence: US)
  Receive Date: 20131105
  Receipt Date: 20140129
  Transmission Date: 20141002
  Serious: Yes (Death)
  Sender: FDA-Public Use
  Company Number: US-PFIZER INC-2013311254

PATIENT
  Age: 32 Year
  Sex: Female

DRUGS (1)
  1. XALKORI [Suspect]
     Indication: PANCREATIC CARCINOMA METASTATIC
     Dosage: 200 MG, 2X/DAY
     Route: 048
     Dates: start: 201308

REACTIONS (3)
  - Death [Fatal]
  - Hepatic enzyme increased [Unknown]
  - Off label use [Unknown]
